FAERS Safety Report 24800854 (Version 2)
Quarter: 2025Q1

REPORT INFORMATION
  Report Type: Spontaneous
  Country: FR (occurrence: FR)
  Receive Date: 20250102
  Receipt Date: 20250103
  Transmission Date: 20250408
  Serious: Yes (Hospitalization)
  Sender: PFIZER
  Company Number: None

PATIENT
  Age: 65 Year
  Sex: Male
  Weight: 65 kg

DRUGS (1)
  1. RUXIENCE [Suspect]
     Active Substance: RITUXIMAB-PVVR
     Indication: Mantle cell lymphoma
     Route: 042
     Dates: start: 20241007, end: 20241007

REACTIONS (2)
  - Serum sickness [Recovered/Resolved]
  - Vascular purpura [Recovered/Resolved]

NARRATIVE: CASE EVENT DATE: 20241022
